FAERS Safety Report 8378671-7 (Version None)
Quarter: 2012Q2

REPORT INFORMATION
  Report Type: 
  Country: None (occurrence: None)
  Receive Date: 20120522
  Receipt Date: 20120517
  Transmission Date: 20120825
  Serious: Yes (Other)
  Sender: FDA-Public Use
  Company Number: PHHY2012IT042342

PATIENT
  Age: 53 Year
  Sex: Male

DRUGS (2)
  1. VALPROIC ACID [Suspect]
     Indication: STATUS EPILEPTICUS
  2. PHENYTOIN SODIUM CAP [Interacting]
     Indication: STATUS EPILEPTICUS

REACTIONS (4)
  - ELECTROCARDIOGRAM QRS COMPLEX ABNORMAL [None]
  - CARDIOTOXICITY [None]
  - ELECTROCARDIOGRAM ST SEGMENT ELEVATION [None]
  - HAEMODYNAMIC INSTABILITY [None]
